FAERS Safety Report 19177115 (Version 1)
Quarter: 2021Q2

REPORT INFORMATION
  Report Type: Spontaneous
  Country: NL (occurrence: NL)
  Receive Date: 20210424
  Receipt Date: 20210424
  Transmission Date: 20210717
  Serious: Yes (Hospitalization, Disabling)
  Sender: FDA-Public Use
  Company Number: NL-ASTRAZENECA-2021A333195

PATIENT
  Age: 73 Year
  Sex: Male
  Weight: 95.5 kg

DRUGS (8)
  1. DENOSUMAB [Concomitant]
     Active Substance: DENOSUMAB
  2. GOSERLINE [Concomitant]
  3. BECLOMETASON/FORMOTEROL [Concomitant]
     Dosage: 200/6UG/ 1 DOSE TWICE A DAY 1 DF EVERY 12 HOURS
  4. PARACETAMOL [Concomitant]
     Active Substance: ACETAMINOPHEN
     Dosage: IF NECESSARY, 1000 MG 4 TIMES A DAY
  5. SALBUTAMOL [Concomitant]
     Active Substance: ALBUTEROL
     Dosage: 100UG IF NECESSARY
  6. PREDNISOLON [Concomitant]
     Active Substance: PREDNISOLONE
  7. OLAPARIB. [Suspect]
     Active Substance: OLAPARIB
     Indication: PROSTATE CANCER
     Route: 048
     Dates: start: 20210317, end: 20210331
  8. CALCIUMCARB/COLECALC [Concomitant]
     Dosage: 1,25G/800IE, 1 X PER DAY 1 PIECE IN THE AFTERNOON

REACTIONS (1)
  - Guillain-Barre syndrome [Not Recovered/Not Resolved]

NARRATIVE: CASE EVENT DATE: 20210328
